FAERS Safety Report 17974317 (Version 1)
Quarter: 2020Q3

REPORT INFORMATION
  Report Type: Spontaneous
  Country: US (occurrence: US)
  Receive Date: 20200702
  Receipt Date: 20200702
  Transmission Date: 20201103
  Serious: Yes (Life-Threatening, Other)
  Sender: FDA-Public Use
  Company Number: None

PATIENT
  Sex: Male
  Weight: 85.5 kg

DRUGS (3)
  1. CLONAZEPAM. [Suspect]
     Active Substance: CLONAZEPAM
     Dosage: ?          QUANTITY:1 TABLET(S);?
  2. GARLIC. [Concomitant]
     Active Substance: GARLIC
  3. FLAX SEED [Concomitant]
     Active Substance: FLAX SEED

REACTIONS (4)
  - Headache [None]
  - Disturbance in attention [None]
  - Pain [None]
  - Cardiac failure [None]
